FAERS Safety Report 7288113-0 (Version None)
Quarter: 2011Q1

REPORT INFORMATION
  Report Type: 
  Country: None (occurrence: None)
  Receive Date: 20110211
  Receipt Date: 20110203
  Transmission Date: 20110831
  Serious: Yes (Other)
  Sender: FDA-Public Use
  Company Number: US-BAYER-2011-011706

PATIENT
  Sex: Male
  Weight: 91 kg

DRUGS (2)
  1. ALKA-SELTZER PLUS DAY COLD [Suspect]
     Dosage: BOTTLE COUNT 20CT
     Dates: start: 20110203, end: 20110203
  2. ALKA-SELTZER PLUS NIGHT COLD [Suspect]
     Dosage: BOTTLE COUNT 20CT
     Route: 048
     Dates: start: 20110203, end: 20110203

REACTIONS (3)
  - BALANCE DISORDER [None]
  - DIZZINESS [None]
  - CONFUSIONAL STATE [None]
